FAERS Safety Report 13970085 (Version 1)
Quarter: 2017Q3

REPORT INFORMATION
  Report Type: Spontaneous
  Country: US (occurrence: US)
  Receive Date: 20170914
  Receipt Date: 20170914
  Transmission Date: 20171128
  Serious: No
  Sender: FDA-Public Use
  Company Number: US-ASTRAZENECA-2014SE46572

PATIENT
  Sex: Female

DRUGS (4)
  1. ZOMIG [Suspect]
     Active Substance: ZOLMITRIPTAN
     Indication: MIGRAINE
     Dosage: 2.5MG UNKNOWN
     Route: 048
     Dates: start: 201307
  2. ZOMIG [Suspect]
     Active Substance: ZOLMITRIPTAN
     Indication: CLUSTER HEADACHE
     Dosage: 2.5MG UNKNOWN
     Route: 048
     Dates: start: 201307
  3. ZOMIG [Suspect]
     Active Substance: ZOLMITRIPTAN
     Indication: CLUSTER HEADACHE
     Dosage: 1 SPRAY IN 1 NOSTRIL AT ONSET OF MIGRAINE, MAY REPEAT 1 TIME AFTER 2 HOURS IF NEEDED UNKNOWN
     Route: 045
     Dates: start: 20150310
  4. ZOMIG [Suspect]
     Active Substance: ZOLMITRIPTAN
     Indication: MIGRAINE
     Dosage: 1 SPRAY IN 1 NOSTRIL AT ONSET OF MIGRAINE, MAY REPEAT 1 TIME AFTER 2 HOURS IF NEEDED UNKNOWN
     Route: 045
     Dates: start: 20150310

REACTIONS (4)
  - Schizophrenia [Unknown]
  - Drug ineffective [Unknown]
  - Cluster headache [Unknown]
  - Headache [Not Recovered/Not Resolved]
